FAERS Safety Report 12798885 (Version 2)
Quarter: 2016Q4

REPORT INFORMATION
  Report Type: Spontaneous
  Country: DE (occurrence: DE)
  Receive Date: 20160930
  Receipt Date: 20161018
  Transmission Date: 20170207
  Serious: Yes (Death, Other)
  Sender: FDA-Public Use
  Company Number: DE-009507513-1609DEU012407

PATIENT
  Age: 74 Year
  Sex: Male

DRUGS (9)
  1. REKAWAN [Concomitant]
     Active Substance: POTASSIUM CHLORIDE
     Dosage: UNK, TID, STRENGTH 20 (UNIT NOT PROVIDED)
  2. KEYTRUDA [Suspect]
     Active Substance: PEMBROLIZUMAB
     Indication: METASTATIC MALIGNANT MELANOMA
     Dosage: 2 MG/KG, Q3W
     Dates: start: 20151223, end: 201602
  3. CYNT (SIMVASTATIN) [Concomitant]
     Dosage: UNK, BID, STRENGTH 0.2 (UNIT NOT PROVIDED)
  4. TILIDIN [Concomitant]
     Active Substance: NALOXONE HYDROCHLORIDE\TILIDINE HYDROCHLORIDE
     Dosage: UNK, BID, STRENGTH 50/4 (UNIT NOT PROVIDED)
  5. ASPIRIN. [Concomitant]
     Active Substance: ASPIRIN
     Dosage: UNK UNK, QD, STRENGTH 100 (UNIT NOT PROVIDED)
     Route: 048
  6. SODIUM SELENATE [Concomitant]
     Active Substance: SODIUM SELENATE
     Dosage: UNK UNK, QD, STRENGTH 300 (UNIT NOT PROVIDED)
  7. CANDESARTAN CILEXETIL AND HYDROCHLOROTHIAZIDE [Concomitant]
     Active Substance: CANDESARTAN CILEXETIL\HYDROCHLOROTHIAZIDE
     Dosage: UNK, BID, , STRENGTH 16/12.5 (UNIT NOT PROVIDED)
  8. NORVASC [Concomitant]
     Active Substance: AMLODIPINE BESYLATE
     Dosage: UNK, QD, STRENGTH 20 (UNIT NOT PROVIDED)
  9. SIMVASTATIN. [Concomitant]
     Active Substance: SIMVASTATIN
     Dosage: UNK UNK, QD, STRENGTH 20 (UNIT NOT PROVIDED)
     Route: 048

REACTIONS (4)
  - Malignant neoplasm progression [Fatal]
  - Autoimmune thyroiditis [Recovering/Resolving]
  - Lymphocytic infiltration [Recovering/Resolving]
  - Immune thrombocytopenic purpura [Recovering/Resolving]

NARRATIVE: CASE EVENT DATE: 201601
